FAERS Safety Report 11773538 (Version 1)
Quarter: 2015Q4

REPORT INFORMATION
  Report Type: Spontaneous
  Country: US (occurrence: US)
  Receive Date: 20151124
  Receipt Date: 20151124
  Transmission Date: 20160304
  Serious: No
  Sender: FDA-Public Use
  Company Number: US-AKRIMAX-TIR-2015-0372

PATIENT
  Age: 65 Year
  Sex: Female
  Weight: 64.01 kg

DRUGS (2)
  1. TIROSINT [Suspect]
     Active Substance: LEVOTHYROXINE SODIUM
     Route: 048
     Dates: start: 20151030
  2. TIROSINT [Suspect]
     Active Substance: LEVOTHYROXINE SODIUM
     Indication: HYPOTHYROIDISM
     Dosage: ONE 100MCG AT BEDTIME
     Route: 048
     Dates: start: 201509, end: 20151027

REACTIONS (17)
  - Pruritus [Recovering/Resolving]
  - Food craving [None]
  - Pruritus [None]
  - Dysphonia [Recovered/Resolved]
  - Dyspnoea [Recovering/Resolving]
  - Headache [Recovering/Resolving]
  - Tremor [Recovering/Resolving]
  - Hyperthyroidism [Recovering/Resolving]
  - Muscle tightness [Recovering/Resolving]
  - Chest discomfort [Recovering/Resolving]
  - Blood thyroid stimulating hormone increased [Unknown]
  - Discomfort [None]
  - Food craving [Recovering/Resolving]
  - Skin tightness [None]
  - Insomnia [Recovering/Resolving]
  - Dyspnoea [None]
  - Hypersensitivity [Recovering/Resolving]

NARRATIVE: CASE EVENT DATE: 2015
